FAERS Safety Report 25168825 (Version 1)
Quarter: 2025Q2

REPORT INFORMATION
  Report Type: Spontaneous
  Country: US (occurrence: US)
  Receive Date: 20250407
  Receipt Date: 20250407
  Transmission Date: 20250716
  Serious: No
  Sender: INTRA-CELLULAR THERAPIES
  Company Number: US-INTRA-CELLULAR THERAPIES, INC.-2025ICT00184

PATIENT
  Sex: Male

DRUGS (2)
  1. CAPLYTA [Suspect]
     Active Substance: LUMATEPERONE
     Indication: Schizophrenia
     Dosage: 21 MG, 1X/DAY
     Route: 048
  2. LITHIUM [Concomitant]
     Active Substance: LITHIUM

REACTIONS (3)
  - Drug ineffective [Recovered/Resolved]
  - Somnolence [Unknown]
  - Fatigue [Unknown]
